FAERS Safety Report 10204160 (Version 4)
Quarter: 2018Q4

REPORT INFORMATION
  Report Type: Spontaneous
  Country: US (occurrence: US)
  Receive Date: 20140529
  Receipt Date: 20181219
  Transmission Date: 20190204
  Serious: Yes (Other)
  Sender: FDA-Public Use
  Company Number: US-TEVA-484741USA

PATIENT
  Age: 42 Year
  Sex: Female

DRUGS (2)
  1. ESTRADIOL. [Suspect]
     Active Substance: ESTRADIOL
     Indication: PREGNANCY
     Dosage: 6 MILLIGRAM DAILY;
     Route: 048
     Dates: start: 20140304, end: 20140514
  2. CRINONE [Suspect]
     Active Substance: PROGESTERONE
     Indication: PREGNANCY
     Dosage: 8%
     Route: 067
     Dates: start: 20140519, end: 20140520

REACTIONS (4)
  - Maternal exposure during pregnancy [Unknown]
  - Abortion spontaneous [Unknown]
  - Vaginal discharge [Unknown]
  - Foetal heart rate abnormal [Unknown]

NARRATIVE: CASE EVENT DATE: 201405
